FAERS Safety Report 11999390 (Version 1)
Quarter: 2016Q1

REPORT INFORMATION
  Report Type: Spontaneous
  Country: US (occurrence: US)
  Receive Date: 20160204
  Receipt Date: 20160204
  Transmission Date: 20160526
  Serious: Yes (Death, Hospitalization, Other)
  Sender: FDA-Public Use
  Company Number: US-BRISTOL-MYERS SQUIBB COMPANY-BMS-2016-006776

PATIENT
  Sex: Female

DRUGS (1)
  1. OPDIVO [Suspect]
     Active Substance: NIVOLUMAB
     Indication: LUNG NEOPLASM MALIGNANT
     Route: 042

REACTIONS (7)
  - Hospitalisation [Unknown]
  - Blood potassium increased [Unknown]
  - Renal impairment [None]
  - Death [Fatal]
  - Hypoaesthesia [Unknown]
  - Thyroid function test abnormal [Unknown]
  - Dyspnoea [Unknown]
